FAERS Safety Report 6786726-3 (Version None)
Quarter: 2010Q2

REPORT INFORMATION
  Report Type: 
  Country: None (occurrence: None)
  Receive Date: 20100623
  Receipt Date: 20100610
  Transmission Date: 20101027
  Serious: Yes (Other)
  Sender: FDA-Public Use
  Company Number: US-BAYER-201025487NA

PATIENT
  Age: 31 Year
  Sex: Female

DRUGS (1)
  1. ULTRAVIST 150 [Suspect]
     Indication: COMPUTERISED TOMOGRAM
     Route: 042
     Dates: start: 20100605, end: 20100605

REACTIONS (5)
  - COUGH [None]
  - DYSPNOEA [None]
  - SNEEZING [None]
  - SWELLING FACE [None]
  - THROAT TIGHTNESS [None]
